FAERS Safety Report 9295294 (Version 1)
Quarter: 2013Q2

REPORT INFORMATION
  Report Type: Spontaneous
  Country: US (occurrence: None)
  Receive Date: 20130516
  Receipt Date: 20130516
  Transmission Date: 20140414
  Serious: Yes (Other)
  Sender: FDA-Public Use
  Company Number: None

PATIENT
  Age: 38 Year
  Sex: Female

DRUGS (1)
  1. ENBREL [Suspect]
     Route: 058
     Dates: start: 20130311, end: 20130430

REACTIONS (3)
  - Rash [None]
  - Local swelling [None]
  - Joint swelling [None]
